FAERS Safety Report 17418476 (Version 3)
Quarter: 2020Q2

REPORT INFORMATION
  Report Type: Spontaneous
  Country: US (occurrence: US)
  Receive Date: 20200214
  Receipt Date: 20200521
  Transmission Date: 20200713
  Serious: Yes (Other)
  Sender: FDA-Public Use
  Company Number: US-GILEAD-2020-0450659

PATIENT
  Age: 50 Year
  Sex: Female

DRUGS (24)
  1. VITAMIN B COMPLEX [Concomitant]
     Active Substance: CYANOCOBALAMIN\DEXPANTHENOL\NIACINAMIDE\PYRIDOXINE HYDROCHLORIDE\RIBOFLAVIN 5^-PHOSPHATE SODIUM\THIAMINE HYDROCHLORIDE\VITAMIN B COMPLEX
  2. NORVASC [Concomitant]
     Active Substance: AMLODIPINE BESYLATE
  3. CYMBALTA [Concomitant]
     Active Substance: DULOXETINE HYDROCHLORIDE
  4. CHOLECALCIFEROL [Concomitant]
     Active Substance: CHOLECALCIFEROL
  5. MACRODANTIN [Concomitant]
     Active Substance: NITROFURANTOIN
     Indication: CHRONIC KIDNEY DISEASE
     Dosage: 50 MG, QD
     Dates: start: 20190327
  6. CIPROFLOXACIN. [Concomitant]
     Active Substance: CIPROFLOXACIN
  7. NITROFURANTOIN. [Concomitant]
     Active Substance: NITROFURANTOIN
  8. TIVICAY [Concomitant]
     Active Substance: DOLUTEGRAVIR SODIUM
  9. VALTREX [Concomitant]
     Active Substance: VALACYCLOVIR HYDROCHLORIDE
  10. TEMAZEPAM. [Concomitant]
     Active Substance: TEMAZEPAM
  11. CEFTRIAXONE. [Concomitant]
     Active Substance: CEFTRIAXONE
  12. MUPIROCIN. [Concomitant]
     Active Substance: MUPIROCIN
  13. BACTROBAN [Concomitant]
     Active Substance: MUPIROCIN\MUPIROCIN CALCIUM
  14. TRUVADA [Suspect]
     Active Substance: EMTRICITABINE\TENOFOVIR DISOPROXIL FUMARATE
     Indication: HIV INFECTION
     Dosage: UNK
     Route: 048
     Dates: start: 20160819, end: 20190327
  15. AMLODIPINE [Concomitant]
     Active Substance: AMLODIPINE BESYLATE
  16. SULFAMETHOXAZOLE [Concomitant]
     Active Substance: SULFAMETHOXAZOLE
  17. BIOTIN A [Concomitant]
  18. HEPATITIS B VACCINE [Concomitant]
     Active Substance: HEPATITIS B VIRUS VACCINE
  19. MENINGOCOCCAL VACCINE CONJ [Concomitant]
  20. BIKTARVY [Concomitant]
     Active Substance: BICTEGRAVIR SODIUM\EMTRICITABINE\TENOFOVIR ALAFENAMIDE FUMARATE
  21. FISH OIL [Concomitant]
     Active Substance: FISH OIL
  22. BACTRIM DS [Concomitant]
     Active Substance: SULFAMETHOXAZOLE\TRIMETHOPRIM
  23. COMPLERA [Suspect]
     Active Substance: EMTRICITABINE\RILPIVIRINE HYDROCHLORIDE\TENOFOVIR DISOPROXIL FUMARATE
     Indication: HIV INFECTION
     Dosage: UNK
     Route: 048
     Dates: start: 20141107, end: 20160820
  24. VARENICLINE [Concomitant]
     Active Substance: VARENICLINE

REACTIONS (9)
  - Renal failure [Unknown]
  - Anhedonia [Unknown]
  - Bone density decreased [Unknown]
  - Osteoarthritis [Not Recovered/Not Resolved]
  - Emotional distress [Unknown]
  - Economic problem [Unknown]
  - Pain [Unknown]
  - Anxiety [Unknown]
  - Chronic kidney disease [Not Recovered/Not Resolved]

NARRATIVE: CASE EVENT DATE: 2019
